FAERS Safety Report 18666222 (Version 1)
Quarter: 2020Q4

REPORT INFORMATION
  Report Type: Report from Study
  Country: ZA (occurrence: ZA)
  Receive Date: 20201226
  Receipt Date: 20201226
  Transmission Date: 20210114
  Serious: Yes (Other)
  Sender: FDA-Public Use
  Company Number: NVSC2020ZA332705

PATIENT

DRUGS (10)
  1. OMEZ [Suspect]
     Active Substance: OMEPRAZOLE
     Indication: GASTROOESOPHAGEAL REFLUX DISEASE
     Dosage: 20 MG (TABLET)
     Route: 048
  2. ENTRESTO [Concomitant]
     Active Substance: SACUBITRIL\VALSARTAN
     Indication: CARDIAC FAILURE CONGESTIVE
     Dosage: 1 DF, BID
     Route: 048
  3. FUROSEMIDE. [Concomitant]
     Active Substance: FUROSEMIDE
     Indication: CARDIAC FAILURE
     Dosage: 2 DF, BID
     Route: 065
  4. FOXAIR [Concomitant]
     Active Substance: FLUTICASONE PROPIONATE\SALMETEROL XINAFOATE
     Indication: CONDUCTION DISORDER
     Dosage: UNK, BID
     Route: 065
  5. HIDRIST [Concomitant]
     Active Substance: BETAHISTINE HYDROCHLORIDE
     Indication: DIZZINESS
     Dosage: 2 DF, QD (1-2 TAB, DAILY)
     Route: 065
  6. SPIRACTIN [Concomitant]
     Indication: CARDIAC FAILURE
     Dosage: 1 DF
     Route: 048
  7. CHOLECALCIFEROL [Suspect]
     Active Substance: CHOLECALCIFEROL
     Indication: HYPOPARATHYROIDISM
     Dosage: 50000 IU, QW
     Route: 048
  8. DUOLIN [Concomitant]
     Indication: CONDUCTION DISORDER
     Dosage: 1 DF, PRN
     Route: 065
  9. PHENYTOIN SODIUM. [Suspect]
     Active Substance: PHENYTOIN SODIUM
     Indication: EPILEPSY
     Dosage: 100 MG, TID
     Route: 048
  10. FERRIMED [Concomitant]
     Indication: CARDIAC FAILURE
     Dosage: 1 DF, QD
     Route: 048

REACTIONS (15)
  - Oxygen saturation abnormal [Unknown]
  - Lymphocyte count decreased [Unknown]
  - Dyspnoea [Unknown]
  - Haematocrit decreased [Unknown]
  - Red blood cell count decreased [Unknown]
  - Pulmonary oedema [Unknown]
  - Thrombocytopenia [Unknown]
  - Orthopnoea [Unknown]
  - Fatigue [Unknown]
  - Haemoglobin decreased [Unknown]
  - Glomerular filtration rate decreased [Unknown]
  - Oedema peripheral [Unknown]
  - Eosinophil count increased [Unknown]
  - N-terminal prohormone brain natriuretic peptide abnormal [Unknown]
  - Blood urea abnormal [Unknown]
